FAERS Safety Report 11876698 (Version 1)
Quarter: 2015Q4

REPORT INFORMATION
  Report Type: Spontaneous
  Country: None (occurrence: None)
  Receive Date: 20151229
  Receipt Date: 20151229
  Transmission Date: 20160305
  Serious: Yes (Other)
  Sender: FDA-Public Use
  Company Number: BAUSCH-BL-2015-030767

PATIENT
  Age: 1 Month
  Sex: Male
  Weight: 1.7 kg

DRUGS (2)
  1. PHENYLEPHRINE [Suspect]
     Active Substance: PHENYLEPHRINE\PHENYLEPHRINE HYDROCHLORIDE
     Indication: INVESTIGATION
     Route: 047
  2. TROPICAMIDE. [Concomitant]
     Active Substance: TROPICAMIDE
     Indication: INVESTIGATION
     Route: 047

REACTIONS (2)
  - Bronchospasm [Unknown]
  - Blood pressure decreased [Unknown]
